FAERS Safety Report 19756105 (Version 2)
Quarter: 2021Q3

REPORT INFORMATION
  Report Type: Report from Study
  Country: CA (occurrence: CA)
  Receive Date: 20210827
  Receipt Date: 20210903
  Transmission Date: 20211014
  Serious: Yes (Death, Hospitalization)
  Sender: FDA-Public Use
  Company Number: CA-ASTRAZENECA-2021A696502

PATIENT
  Sex: Female

DRUGS (1)
  1. LYNPARZA [Suspect]
     Active Substance: OLAPARIB
     Indication: OVARIAN CANCER
     Route: 048
     Dates: start: 20180903, end: 20200621

REACTIONS (13)
  - Cardio-respiratory arrest [Fatal]
  - Metastases to liver [Fatal]
  - Ascites [Fatal]
  - Abdominal pain [Fatal]
  - Vomiting [Fatal]
  - Anxiety [Fatal]
  - Diarrhoea [Fatal]
  - Sepsis [Fatal]
  - Ventricular tachycardia [Fatal]
  - Nausea [Fatal]
  - Malignant neoplasm progression [Fatal]
  - Decreased appetite [Fatal]
  - Metastases to peritoneum [Fatal]
